FAERS Safety Report 24116108 (Version 1)
Quarter: 2024Q3

REPORT INFORMATION
  Report Type: Report from Study
  Country: BR (occurrence: None)
  Receive Date: 20240722
  Receipt Date: 20240722
  Transmission Date: 20241016
  Serious: Yes (Hospitalization, Other)
  Sender: ASTRAZENECA
  Company Number: 2019SE53021

PATIENT
  Sex: Female

DRUGS (1)
  1. FASENRA [Suspect]
     Active Substance: BENRALIZUMAB
     Indication: Asthma
     Dosage: 30 MG/ML EVERY 4 WEEKS IN THE FIRST 3 DOSES THEN EVERY 8 WEEKS
     Route: 058
     Dates: start: 20181220

REACTIONS (3)
  - Pulmonary oedema [Unknown]
  - Anaemia [Unknown]
  - Oxygen saturation abnormal [Unknown]
